FAERS Safety Report 5421043-5 (Version None)
Quarter: 2007Q3

REPORT INFORMATION
  Report Type: 
  Country: None (occurrence: None)
  Receive Date: 20070821
  Receipt Date: 20070815
  Transmission Date: 20080115
  Serious: Yes (Hospitalization)
  Sender: FDA-Public Use
  Company Number: A0670629A

PATIENT
  Age: 89 Year
  Sex: Female

DRUGS (10)
  1. COREG [Suspect]
     Dosage: 6.25MG TWICE PER DAY
     Route: 048
     Dates: start: 20050101
  2. BONIVA [Suspect]
     Indication: DRUG USE FOR UNKNOWN INDICATION
     Route: 065
  3. FUROSEMIDE [Concomitant]
  4. PLAVIX [Concomitant]
  5. SYNTHROID [Concomitant]
  6. PREVACID [Concomitant]
  7. OSCAL [Concomitant]
  8. CENTRUM [Concomitant]
  9. IRON [Concomitant]
  10. DIOVAN [Concomitant]

REACTIONS (1)
  - DYSPHAGIA [None]
